FAERS Safety Report 4427730-X (Version None)
Quarter: 2004Q3

REPORT INFORMATION
  Report Type: 
  Country: None (occurrence: None)
  Receive Date: 20040817
  Receipt Date: 20040811
  Transmission Date: 20050211
  Serious: Yes (Death)
  Sender: FDA-Public Use
  Company Number: US-GLAXOSMITHKLINE-A0521958A

PATIENT
  Sex: Female

DRUGS (2)
  1. LOTRONEX [Suspect]
     Indication: DRUG USE FOR UNKNOWN INDICATION
     Dosage: 1MG PER DAY
     Route: 048
  2. INSULIN [Concomitant]

REACTIONS (1)
  - MULTIPLE MYELOMA [None]
